FAERS Safety Report 5321911-9 (Version None)
Quarter: 2007Q2

REPORT INFORMATION
  Report Type: 
  Country: None (occurrence: None)
  Receive Date: 20070508
  Receipt Date: 20070508
  Transmission Date: 20071010
  Serious: Yes (Hospitalization)
  Sender: FDA-Public Use
  Company Number: None

PATIENT
  Sex: Male
  Weight: 66.2252 kg

DRUGS (2)
  1. ALIMTA [Suspect]
     Indication: NEOPLASM MALIGNANT
     Dosage: 895 MG/IV EVERY 3 WEEKS
     Route: 042
     Dates: start: 20070411
  2. AVASTIN [Suspect]
     Indication: NEOPLASM MALIGNANT
     Dosage: 990 MG/IV EVERY 3 WEEKS
     Route: 042
     Dates: start: 20070411

REACTIONS (1)
  - MOUTH HAEMORRHAGE [None]
